FAERS Safety Report 8854083 (Version 2)
Quarter: 2013Q1

REPORT INFORMATION
  Report Type: Spontaneous
  Country: US (occurrence: US)
  Receive Date: 20121022
  Receipt Date: 20130122
  Transmission Date: 20140127
  Serious: Yes (Other)
  Sender: FDA-Public Use
  Company Number: US-JNJFOC-20121007482

PATIENT
  Sex: Female
  Weight: 113.4 kg

DRUGS (22)
  1. SIMPONI [Suspect]
     Indication: PSORIATIC ARTHROPATHY
     Route: 058
     Dates: start: 2011, end: 20120629
  2. SIMPONI [Suspect]
     Indication: PSORIATIC ARTHROPATHY
     Route: 058
     Dates: start: 2010, end: 2011
  3. OXYCONTIN [Suspect]
     Indication: ARTHRALGIA
     Route: 048
  4. OXYCONTIN [Suspect]
     Indication: ARTHRALGIA
     Route: 048
  5. TRICOR [Concomitant]
     Indication: BLOOD CHOLESTEROL
     Route: 065
     Dates: end: 201206
  6. CRESTOR [Concomitant]
     Indication: BLOOD CHOLESTEROL
     Route: 065
     Dates: end: 201206
  7. DIOVAN [Concomitant]
     Indication: BLOOD PRESSURE
     Route: 048
  8. COREG [Concomitant]
     Indication: CARDIAC DISORDER
     Route: 048
  9. LEXAPRO [Concomitant]
     Indication: ANXIETY
     Route: 048
  10. LEXAPRO [Concomitant]
     Indication: DEPRESSION
     Route: 048
  11. LASIX [Concomitant]
     Indication: BLOOD PRESSURE
     Route: 048
  12. PROTONIX [Concomitant]
     Indication: GASTROINTESTINAL DISORDER THERAPY
     Route: 048
  13. MIRAPEX [Concomitant]
     Indication: RESTLESSNESS
     Route: 048
  14. SYNTHROID [Concomitant]
     Indication: THYROID DISORDER
     Dosage: 150MCGMG
     Route: 048
  15. CYTOMEL [Concomitant]
     Indication: THYROID DISORDER
     Dosage: 5 MCG
     Route: 048
  16. KLONOPIN [Concomitant]
     Indication: RESTLESSNESS
     Route: 048
  17. SINGULAIR [Concomitant]
     Indication: HYPERSENSITIVITY
     Route: 048
  18. WELLBUTRIN [Concomitant]
     Indication: SLEEP DISORDER THERAPY
     Route: 048
  19. FLONASE [Concomitant]
     Indication: SINUS DISORDER
     Dosage: 50 MCG
     Route: 055
  20. ADVAIR [Concomitant]
     Indication: CHRONIC OBSTRUCTIVE PULMONARY DISEASE
     Dosage: 250MCG
     Route: 055
  21. PRO-AIR [Concomitant]
     Indication: ASTHMA
     Dosage: 90 MCG
     Route: 055
  22. ASPIRIN [Concomitant]
     Indication: CARDIAC DISORDER
     Route: 048

REACTIONS (4)
  - Arthralgia [Unknown]
  - Therapeutic response decreased [Recovered/Resolved]
  - Blood creatine phosphokinase increased [Not Recovered/Not Resolved]
  - Aldolase increased [Recovering/Resolving]
